FAERS Safety Report 9913957 (Version 1)
Quarter: 2014Q1

REPORT INFORMATION
  Report Type: Spontaneous
  Country: NO (occurrence: NO)
  Receive Date: 20140220
  Receipt Date: 20140220
  Transmission Date: 20141002
  Serious: Yes (Hospitalization)
  Sender: FDA-Public Use
  Company Number: NO-B.I. PHARMACEUTICALS,INC./RIDGEFIELD-2014-BI-07559NO

PATIENT
  Age: 63 Year
  Sex: Male

DRUGS (4)
  1. PRADAXA [Suspect]
     Indication: ATRIAL FIBRILLATION
     Dosage: 300 MG
     Dates: start: 20140107, end: 20140204
  2. ALBYL-E/ACETYLSALICYCLIC ACID [Concomitant]
     Indication: PROPHYLAXIS
     Dates: start: 2005
  3. LIPITOR/ATORVASTATIN [Concomitant]
     Indication: PROPHYLAXIS
     Dates: start: 2005
  4. SELO-ZOK/METROPOLO [Concomitant]
     Indication: PROPHYLAXIS
     Dates: start: 2005

REACTIONS (1)
  - Gouty arthritis [Recovered/Resolved]
